FAERS Safety Report 8388629-X (Version None)
Quarter: 2012Q2

REPORT INFORMATION
  Report Type: 
  Country: None (occurrence: None)
  Receive Date: 20120525
  Receipt Date: 20120515
  Transmission Date: 20120825
  Serious: Yes (Hospitalization, Disabling)
  Sender: FDA-Public Use
  Company Number: US-MERCK-1201USA00780

PATIENT
  Age: 74 Year
  Sex: Female
  Weight: 80 kg

DRUGS (8)
  1. VITAMIN D (UNSPECIFIED) [Concomitant]
     Route: 065
  2. FOSAMAX [Suspect]
     Route: 048
     Dates: start: 19980801, end: 20080505
  3. SYNTHROID [Concomitant]
     Route: 048
  4. VITAMINS (UNSPECIFIED) [Concomitant]
     Route: 065
  5. ARTHROTEC [Concomitant]
     Indication: OSTEOARTHRITIS
     Route: 065
  6. ALENDRONATE SODIUM [Suspect]
     Route: 048
     Dates: start: 20080809, end: 20100101
  7. CALCIUM (UNSPECIFIED) [Concomitant]
     Route: 065
  8. FOSAMAX [Suspect]
     Route: 048
     Dates: start: 19960101, end: 20100101

REACTIONS (31)
  - FALL [None]
  - ARTHRITIS BACTERIAL [None]
  - URINARY TRACT INFECTION [None]
  - STRESS [None]
  - DIVERTICULUM [None]
  - DRUG ERUPTION [None]
  - BODY HEIGHT DECREASED [None]
  - COLONIC POLYP [None]
  - FOOT DEFORMITY [None]
  - FEMUR FRACTURE [None]
  - ADVERSE DRUG REACTION [None]
  - OSTEOPENIA [None]
  - ABDOMINAL DISCOMFORT [None]
  - HYPERTENSION [None]
  - CONTUSION [None]
  - HYPERGLYCAEMIA [None]
  - PNEUMONITIS [None]
  - TOOTH ABSCESS [None]
  - FIBULA FRACTURE [None]
  - LOBAR PNEUMONIA [None]
  - SPINAL OSTEOARTHRITIS [None]
  - ADHESION [None]
  - JOINT SWELLING [None]
  - RHINITIS ALLERGIC [None]
  - NASAL CONGESTION [None]
  - ARTHRITIS [None]
  - ARTHRALGIA [None]
  - MYALGIA [None]
  - OSTEOARTHRITIS [None]
  - WEIGHT DECREASED [None]
  - COUGH [None]
